FAERS Safety Report 8354775-X (Version None)
Quarter: 2012Q2

REPORT INFORMATION
  Report Type: 
  Country: None (occurrence: None)
  Receive Date: 20120511
  Receipt Date: 20120507
  Transmission Date: 20120825
  Serious: Yes (Other)
  Sender: FDA-Public Use
  Company Number: PHHY2012JP035235

PATIENT
  Age: 29 Year
  Sex: Male

DRUGS (8)
  1. RIFAMPICIN [Suspect]
     Indication: TUBERCULOSIS
     Route: 048
  2. PYRAZINAMIDE [Suspect]
     Indication: TUBERCULOSIS
     Route: 048
  3. STREPTOMYCIN SULFATE [Concomitant]
  4. ISONIAZID [Suspect]
     Indication: TUBERCULOSIS
     Route: 048
  5. PREDNISOLONE [Concomitant]
     Dosage: 10 MG, QD
  6. ETHAMBUTOL HYDROCHLORIDE [Suspect]
     Indication: TUBERCULOSIS
     Route: 048
  7. PREDNISOLONE [Concomitant]
     Dosage: 60 MG, QD
  8. CIPROFLOXACIN [Concomitant]

REACTIONS (3)
  - PARADOXICAL DRUG REACTION [None]
  - TUBERCULOSIS OF CENTRAL NERVOUS SYSTEM [None]
  - HEADACHE [None]
